FAERS Safety Report 8901055 (Version 1)
Quarter: 2012Q4

REPORT INFORMATION
  Report Type: Report from Study
  Country: GB (occurrence: GB)
  Receive Date: 20121109
  Receipt Date: 20121109
  Transmission Date: 20130627
  Serious: Yes (Hospitalization)
  Sender: FDA-Public Use
  Company Number: GB-B.I. PHARMACEUTICALS,INC./RIDGEFIELD-2012-UK-01667UK

PATIENT
  Age: 88 Year
  Sex: Male
  Weight: 80 kg

DRUGS (1)
  1. DABIGATRAN [Suspect]

REACTIONS (1)
  - Pneumonia [Unknown]
